FAERS Safety Report 10147184 (Version 1)
Quarter: 2014Q2

REPORT INFORMATION
  Report Type: Spontaneous
  Country: US (occurrence: US)
  Receive Date: 20140501
  Receipt Date: 20140501
  Transmission Date: 20141212
  Serious: Yes (Other)
  Sender: FDA-Public Use
  Company Number: US-TEVA-478717USA

PATIENT
  Sex: Female

DRUGS (3)
  1. COPAXONE [Suspect]
  2. REBIF [Suspect]
  3. TECFIDERA [Suspect]
     Dates: start: 201307

REACTIONS (2)
  - Multiple sclerosis relapse [Unknown]
  - Flushing [Unknown]
